FAERS Safety Report 8831294 (Version 2)
Quarter: 2013Q2

REPORT INFORMATION
  Report Type: Report from Study
  Country: JP (occurrence: JP)
  Receive Date: 20121008
  Receipt Date: 20130515
  Transmission Date: 20140414
  Serious: Yes (Other)
  Sender: FDA-Public Use
  Company Number: JP-VERTEX PHARMACEUTICAL INC.-2012-022275

PATIENT
  Age: 64 Year
  Sex: Male

DRUGS (14)
  1. VX-950 (TELAPREVIR) [Suspect]
     Indication: CHRONIC HEPATITIS C
     Dosage: 2250 MG, QD
     Route: 048
     Dates: start: 20120807, end: 20120814
  2. VX-950 (TELAPREVIR) [Suspect]
     Dosage: 1500 MG, QD
     Route: 048
     Dates: start: 20120815
  3. RIBAVIRIN [Suspect]
     Indication: CHRONIC HEPATITIS C
     Dosage: 800 MG, QD
     Route: 048
     Dates: start: 20120807, end: 20120911
  4. RIBAVIRIN [Suspect]
     Dosage: 200 MG, QOD
     Route: 048
     Dates: start: 20120912, end: 20120917
  5. PEGINTERFERON ALFA-2B [Suspect]
     Indication: CHRONIC HEPATITIS C
     Dosage: 1.55 ?G/KG, QW
     Route: 058
     Dates: start: 20120807
  6. URSODEOXYCHOLIC ACID [Concomitant]
     Dosage: 300 MG, QD
     Route: 048
     Dates: end: 20120814
  7. LENDORMIN [Concomitant]
     Dosage: 0.25 MG, QD/PRN
     Route: 048
  8. TAKEPRON [Concomitant]
     Dosage: 15 MG, QD
     Route: 048
  9. CALBLOCK [Concomitant]
     Dosage: 16 MG, QD
     Route: 048
  10. DIOVAN [Concomitant]
     Dosage: 80 MG, QD
     Route: 048
  11. NEUER [Concomitant]
     Dosage: 3 DF, QD
     Route: 048
     Dates: end: 20120814
  12. LOCOID [Concomitant]
     Dosage: UNK, QD
     Route: 061
     Dates: start: 20120814
  13. NIZORAL [Concomitant]
     Dosage: UNK, QD
     Route: 061
     Dates: start: 20120814
  14. PROHEPARUM S [Concomitant]
     Dosage: 6 DF, QD
     Route: 048
     Dates: end: 20120814

REACTIONS (1)
  - Retinopathy [Recovered/Resolved]
